FAERS Safety Report 23711231 (Version 2)
Quarter: 2024Q2

REPORT INFORMATION
  Report Type: Report from Study
  Country: BR (occurrence: BR)
  Receive Date: 20240405
  Receipt Date: 20240410
  Transmission Date: 20240717
  Serious: Yes (Other)
  Sender: FDA-Public Use
  Company Number: BR-CELLTRION INC.-2024BR007900

PATIENT

DRUGS (4)
  1. INFLIXIMAB [Suspect]
     Active Substance: INFLIXIMAB
     Indication: Crohn^s disease
     Dosage: 3 AMPOULES
     Route: 042
     Dates: start: 202311
  2. INFLIXIMAB [Suspect]
     Active Substance: INFLIXIMAB
     Dosage: 3 AMPOULES
     Route: 042
     Dates: start: 202401
  3. INFLIXIMAB [Suspect]
     Active Substance: INFLIXIMAB
     Dosage: 5 AMPOULES
     Route: 042
     Dates: start: 20240322
  4. MESALAMINE [Concomitant]
     Active Substance: MESALAMINE
     Indication: Crohn^s disease
     Dosage: 3 PILLS A DAY (3 YEARS)
     Route: 048

REACTIONS (6)
  - Crohn^s disease [Recovered/Resolved]
  - Infusion related hypersensitivity reaction [Recovered/Resolved]
  - Symptom recurrence [Recovered/Resolved]
  - Intentional dose omission [Unknown]
  - Intentional product use issue [Unknown]
  - Contraindication to medical treatment [Recovered/Resolved]

NARRATIVE: CASE EVENT DATE: 20231101
